FAERS Safety Report 6245732-8 (Version None)
Quarter: 2009Q2

REPORT INFORMATION
  Report Type: 
  Country: None (occurrence: None)
  Receive Date: 20090625
  Receipt Date: 20090622
  Transmission Date: 20091009
  Serious: Yes (Disabling, Other)
  Sender: FDA-Public Use
  Company Number: US-MERCK-0712USA08208

PATIENT
  Age: 64 Year
  Sex: Female

DRUGS (1)
  1. FOSAMAX [Suspect]
     Indication: OSTEOPENIA
     Route: 048
     Dates: start: 20021018, end: 20040701

REACTIONS (10)
  - ADVERSE EVENT [None]
  - DEAFNESS [None]
  - DEVICE RELATED INFECTION [None]
  - FAILURE OF IMPLANT [None]
  - NASAL SEPTUM DEVIATION [None]
  - ONYCHOMYCOSIS [None]
  - OTITIS MEDIA [None]
  - RESORPTION BONE INCREASED [None]
  - UPPER LIMB FRACTURE [None]
  - UPPER RESPIRATORY TRACT INFECTION [None]
